FAERS Safety Report 9009632 (Version 1)
Quarter: 2013Q1

REPORT INFORMATION
  Report Type: Spontaneous
  Country: NO (occurrence: NO)
  Receive Date: 20130110
  Receipt Date: 20130110
  Transmission Date: 20140127
  Serious: Yes (Other)
  Sender: FDA-Public Use
  Company Number: NO-PFIZER INC-2012296816

PATIENT
  Age: 41 Year
  Sex: Female

DRUGS (5)
  1. CHAMPIX [Suspect]
     Indication: SMOKING CESSATION THERAPY
     Dosage: 1 MG, 2X/DAY
     Route: 048
     Dates: start: 20120729, end: 20121230
  2. CHAMPIX [Suspect]
     Dosage: 0.5 MG, 1X/DAY
     Route: 048
     Dates: start: 20121230
  3. LITHIONIT [Concomitant]
     Indication: BIPOLAR DISORDER
     Dosage: 83 MG, 2X/DAY
     Dates: start: 20120605
  4. CIPRAMIL [Concomitant]
     Dosage: 10 MG, 1X/DAY
     Dates: start: 20100615
  5. SEROQUEL [Concomitant]
     Dosage: 125 MG, 1X/DAY

REACTIONS (1)
  - Alopecia [Not Recovered/Not Resolved]
